FAERS Safety Report 7207112-8 (Version None)
Quarter: 2010Q4

REPORT INFORMATION
  Report Type: 
  Country: None (occurrence: None)
  Receive Date: 20101221
  Receipt Date: 20101208
  Transmission Date: 20110411
  Serious: Yes (Other)
  Sender: FDA-Public Use
  Company Number: BI-L-20100007

PATIENT
  Age: 53 Year
  Sex: Female

DRUGS (5)
  1. ESTRADIOL [Suspect]
     Dosage: TOPICAL
     Route: 061
  2. BUPIVACINE (UNKNOWN) [Suspect]
     Indication: SPINAL ANAESTHESIA
     Dosage: 2,5 ML, 1 IN 1 D
  3. DEXAMETHASONE [Suspect]
  4. DIAMORPHINE [Suspect]
     Dosage: 300 MCG, 1 IN 1 D
  5. BENDROFLUAZIDE [Concomitant]

REACTIONS (3)
  - MYOCLONUS [None]
  - POST PROCEDURAL COMPLICATION [None]
  - VITAMIN B12 DECREASED [None]
